FAERS Safety Report 5853330-0 (Version None)
Quarter: 2008Q3

REPORT INFORMATION
  Report Type: 
  Country: None (occurrence: None)
  Receive Date: 20080821
  Receipt Date: 20080811
  Transmission Date: 20090109
  Serious: Yes (Other)
  Sender: FDA-Public Use
  Company Number: US-PFIZER INC-2008067160

PATIENT
  Sex: Female
  Weight: 68 kg

DRUGS (1)
  1. GEODON (IM) [Suspect]
     Dosage: DAILY DOSE:.6ML
     Dates: start: 20080810, end: 20080810

REACTIONS (5)
  - EYE OEDEMA [None]
  - INTRAOCULAR PRESSURE TEST ABNORMAL [None]
  - MEDICATION ERROR [None]
  - OCULAR HYPERAEMIA [None]
  - VISUAL IMPAIRMENT [None]
